FAERS Safety Report 5933742-7 (Version None)
Quarter: 2008Q4

REPORT INFORMATION
  Report Type: 
  Country: None (occurrence: None)
  Receive Date: 20081029
  Receipt Date: 20081020
  Transmission Date: 20090506
  Serious: Yes (Death, Other)
  Sender: FDA-Public Use
  Company Number: US-ROCHE-586416

PATIENT
  Sex: Male
  Weight: 86.6 kg

DRUGS (3)
  1. PEGASYS [Suspect]
     Indication: HEPATITIS C
     Dosage: FORM: PRE-FILLED SYRINGE
     Route: 065
     Dates: start: 20080405, end: 20080912
  2. RIBAVIRIN [Interacting]
     Indication: HEPATITIS C
     Dosage: DOSAGE: 2 IN AM AND 2 IN PM
     Route: 065
     Dates: start: 20080405, end: 20080912
  3. HYDROXYZINE [Concomitant]
     Dosage: DOSAGE REPORTED AS 25 MG EVERY 8 HOURS PRN

REACTIONS (7)
  - ARTERIOSCLEROSIS [None]
  - ATRIAL SEPTAL DEFECT [None]
  - CARDIOMEGALY [None]
  - DRUG ABUSE [None]
  - DRUG TOXICITY [None]
  - EMPHYSEMA [None]
  - FAT TISSUE INCREASED [None]
